FAERS Safety Report 24219135 (Version 3)
Quarter: 2024Q3

REPORT INFORMATION
  Report Type: Spontaneous
  Country: US (occurrence: US)
  Receive Date: 20240816
  Receipt Date: 20240916
  Transmission Date: 20241016
  Serious: Yes (Hospitalization, Other)
  Sender: IPSEN
  Company Number: US-IPSEN Group, Research and Development-2024-15924

PATIENT
  Age: 58 Year
  Sex: Male
  Weight: 87.08 kg

DRUGS (15)
  1. TAZVERIK [Suspect]
     Active Substance: TAZEMETOSTAT HYDROBROMIDE
     Indication: Soft tissue sarcoma
     Route: 048
     Dates: start: 202408, end: 20240807
  2. FENTANYL [Concomitant]
     Active Substance: FENTANYL\FENTANYL CITRATE
     Dosage: PATCH
  3. GABAPENTIN [Concomitant]
     Active Substance: GABAPENTIN
  4. IBUPROFEN [Concomitant]
     Active Substance: IBUPROFEN
  5. KEYTRUDA [Concomitant]
     Active Substance: PEMBROLIZUMAB
  6. MIRALAX [Concomitant]
     Active Substance: POLYETHYLENE GLYCOL 3350
  7. MORPHINE SULFATE [Concomitant]
     Active Substance: MORPHINE SULFATE
     Dosage: ER
  8. NAPROXEN [Concomitant]
     Active Substance: NAPROXEN
  9. ZOFRAN [Concomitant]
     Active Substance: ONDANSETRON HYDROCHLORIDE
  10. OXYCODONE [Concomitant]
     Active Substance: OXYCODONE
  11. SENNA S [Concomitant]
     Active Substance: DOCUSATE SODIUM\SENNA LEAF
  12. TYLENOL [Concomitant]
     Active Substance: ACETAMINOPHEN
  13. VITAMIN D3 [Concomitant]
     Active Substance: CHOLECALCIFEROL
  14. CALCIUM [Concomitant]
     Active Substance: CALCIUM
  15. COENZYME Q10 [Concomitant]
     Active Substance: DIETARY SUPPLEMENT\UBIDECARENONE

REACTIONS (7)
  - Infection [Recovering/Resolving]
  - Groin pain [Recovering/Resolving]
  - Pain [Recovering/Resolving]
  - Malignant neoplasm progression [Recovering/Resolving]
  - Back pain [Recovering/Resolving]
  - Arthralgia [Recovering/Resolving]
  - Sepsis [Recovering/Resolving]

NARRATIVE: CASE EVENT DATE: 20240807
